FAERS Safety Report 11112359 (Version 1)
Quarter: 2015Q2

REPORT INFORMATION
  Report Type: Report from Study
  Country: FR (occurrence: FR)
  Receive Date: 20150514
  Receipt Date: 20150514
  Transmission Date: 20150821
  Serious: Yes (Death)
  Sender: FDA-Public Use
  Company Number: FR-ROCHE-1577582

PATIENT
  Age: 73 Year
  Sex: Female

DRUGS (5)
  1. ENDOXAN [Suspect]
     Active Substance: CYCLOPHOSPHAMIDE
     Indication: NON-HODGKIN^S LYMPHOMA
     Dosage: ON DAY 1, DAY 2 AND DAY 3
     Route: 048
     Dates: start: 20051116, end: 20060210
  2. ZOPHREN [Concomitant]
     Active Substance: ONDANSETRON
     Dosage: FOR 5 DAYS DURING EACH CYCLE
     Route: 065
     Dates: start: 20051116, end: 20060210
  3. RITUXIMAB [Suspect]
     Active Substance: RITUXIMAB
     Indication: NON-HODGKIN^S LYMPHOMA
     Route: 065
  4. ZAVEDOS [Suspect]
     Active Substance: IDARUBICIN
     Indication: NON-HODGKIN^S LYMPHOMA
     Route: 048
     Dates: start: 20051116, end: 20060210
  5. CELLTOP [Suspect]
     Active Substance: ETOPOSIDE
     Indication: NON-HODGKIN^S LYMPHOMA
     Dosage: ON DAY 1, DAY 2 AND DAY 3
     Route: 048
     Dates: start: 20051116, end: 20060210

REACTIONS (1)
  - Invasive ductal breast carcinoma [Fatal]

NARRATIVE: CASE EVENT DATE: 20110915
